FAERS Safety Report 6720691-X (Version None)
Quarter: 2010Q2

REPORT INFORMATION
  Report Type: 
  Country: None (occurrence: None)
  Receive Date: 20100511
  Receipt Date: 20100505
  Transmission Date: 20101027
  Serious: Yes (Other)
  Sender: FDA-Public Use
  Company Number: GB-ABBOTT-09P-167-0592564-00

PATIENT
  Age: 52 Year
  Sex: Female
  Weight: 60 kg

DRUGS (5)
  1. KALETRA [Suspect]
     Indication: INJURY ASSOCIATED WITH DEVICE
     Route: 048
     Dates: start: 20090804, end: 20090805
  2. KALETRA [Suspect]
     Indication: PROPHYLAXIS AGAINST HIV INFECTION
  3. TRUVADA [Suspect]
     Indication: INJURY ASSOCIATED WITH DEVICE
     Dates: start: 20090804, end: 20090805
  4. TRUVADA [Suspect]
     Indication: PROPHYLAXIS AGAINST HIV INFECTION
  5. RAMIPRIL [Concomitant]
     Indication: HYPERTENSION

REACTIONS (5)
  - ABDOMINAL DISCOMFORT [None]
  - COORDINATION ABNORMAL [None]
  - DIARRHOEA [None]
  - DIZZINESS [None]
  - THIRST [None]
